FAERS Safety Report 11947656 (Version 1)
Quarter: 2016Q1

REPORT INFORMATION
  Report Type: Spontaneous
  Country: US (occurrence: US)
  Receive Date: 20160125
  Receipt Date: 20160125
  Transmission Date: 20160526
  Serious: No
  Sender: FDA-Public Use
  Company Number: US-JNJFOC-20151216880

PATIENT
  Age: 58 Year
  Sex: Female
  Weight: 73.48 kg

DRUGS (2)
  1. MENS ROGAINE EXTRA STRENGTH [Suspect]
     Active Substance: MINOXIDIL
     Indication: ALOPECIA
     Route: 061
     Dates: start: 20151127, end: 20151203
  2. MENS ROGAINE EXTRA STRENGTH [Suspect]
     Active Substance: MINOXIDIL
     Route: 061

REACTIONS (6)
  - Inappropriate schedule of drug administration [Recovered/Resolved]
  - Skin disorder [Recovered/Resolved]
  - Drug prescribing error [Recovered/Resolved]
  - Hypersensitivity [Recovered/Resolved]
  - Swelling face [Recovered/Resolved]
  - Off label use [Recovered/Resolved]

NARRATIVE: CASE EVENT DATE: 20151127
